FAERS Safety Report 6528674-X (Version None)
Quarter: 2009Q4

REPORT INFORMATION
  Report Type: 
  Country: None (occurrence: None)
  Receive Date: 20091222
  Receipt Date: 20091106
  Transmission Date: 20100525
  Serious: No
  Sender: FDA-Public Use
  Company Number: ALL1-2009-03561

PATIENT
  Age: 10 Year
  Sex: Male

DRUGS (1)
  1. VYVANSE [Suspect]
     Indication: DRUG USE FOR UNKNOWN INDICATION
     Dosage: 30 MG, 1X/DAY: QD, ORAL; 20 MG, 1X/DAY: QD, ORAL
     Route: 048
     Dates: start: 20090601

REACTIONS (6)
  - AFFECT LABILITY [None]
  - APATHY [None]
  - DISTURBANCE IN ATTENTION [None]
  - INCREASED APPETITE [None]
  - NERVOUSNESS [None]
  - PRODUCT QUALITY ISSUE [None]
